FAERS Safety Report 11452363 (Version 1)
Quarter: 2015Q3

REPORT INFORMATION
  Report Type: Spontaneous
  Country: US (occurrence: US)
  Receive Date: 20150831
  Receipt Date: 20150831
  Transmission Date: 20151125
  Serious: No
  Sender: FDA-Public Use
  Company Number: US-ELI_LILLY_AND_COMPANY-US200907005938

PATIENT
  Age: 62 Year
  Sex: Female

DRUGS (2)
  1. TRAZODONE [Concomitant]
     Active Substance: TRAZODONE HYDROCHLORIDE
     Dates: end: 20090723
  2. CYMBALTA [Suspect]
     Active Substance: DULOXETINE HYDROCHLORIDE
     Indication: SPINAL DISORDER
     Dosage: 60 MG, DAILY (1/D)
     Route: 048
     Dates: start: 20090726, end: 20090727

REACTIONS (8)
  - Spinal pain [Recovering/Resolving]
  - General physical condition abnormal [Recovering/Resolving]
  - Skin burning sensation [Recovering/Resolving]
  - Feeling cold [Recovering/Resolving]
  - Neck pain [Recovering/Resolving]
  - Off label use [Recovered/Resolved]
  - Malaise [Recovering/Resolving]
  - Asthenia [Recovering/Resolving]

NARRATIVE: CASE EVENT DATE: 20090626
